FAERS Safety Report 7232598-2 (Version None)
Quarter: 2011Q1

REPORT INFORMATION
  Report Type: 
  Country: None (occurrence: None)
  Receive Date: 20110119
  Receipt Date: 20110106
  Transmission Date: 20110831
  Serious: Yes (Hospitalization)
  Sender: FDA-Public Use
  Company Number: PHHY2011DE01567

PATIENT
  Sex: Female

DRUGS (2)
  1. NEUROLEPTICS [Concomitant]
  2. LEPONEX [Suspect]
     Indication: PSYCHOTIC DISORDER
     Dosage: 350 MG, QD
     Route: 048
     Dates: start: 20000101

REACTIONS (2)
  - PLEURISY [None]
  - DELIRIUM [None]
